FAERS Safety Report 8959921 (Version 4)
Quarter: 2013Q1

REPORT INFORMATION
  Report Type: Report from Study
  Country: US (occurrence: US)
  Receive Date: 20121211
  Receipt Date: 20130213
  Transmission Date: 20140127
  Serious: Yes (Other)
  Sender: FDA-Public Use
  Company Number: US-BAXTER-2012BAX026343

PATIENT
  Sex: Male
  Weight: 68.1 kg

DRUGS (1)
  1. ARALAST NP [Suspect]
     Indication: ALPHA-1 ANTI-TRYPSIN DEFICIENCY
     Route: 042
     Dates: start: 200906

REACTIONS (2)
  - Lower respiratory tract infection fungal [Recovered/Resolved]
  - Pneumonia escherichia [Unknown]
